FAERS Safety Report 12108963 (Version 1)
Quarter: 2016Q1

REPORT INFORMATION
  Report Type: Spontaneous
  Country: US (occurrence: None)
  Receive Date: 20160222
  Receipt Date: 20160222
  Transmission Date: 20160526
  Serious: Yes (Hospitalization)
  Sender: FDA-Public Use
  Company Number: None

PATIENT
  Age: 90 Year
  Sex: Female

DRUGS (8)
  1. ATORVASTATIN [Concomitant]
     Active Substance: ATORVASTATIN
  2. SPIRONOLACTONE. [Concomitant]
     Active Substance: SPIRONOLACTONE
  3. SUCCINATE [Concomitant]
  4. RIVAROXABAN [Suspect]
     Active Substance: RIVAROXABAN
     Indication: ATRIAL FIBRILLATION
     Route: 048
     Dates: start: 20151101, end: 20160121
  5. CEPHALEXIN. [Concomitant]
     Active Substance: CEPHALEXIN
  6. IRON [Concomitant]
     Active Substance: IRON
  7. BUMETANIDE. [Concomitant]
     Active Substance: BUMETANIDE
  8. METOPROLOL. [Concomitant]
     Active Substance: METOPROLOL

REACTIONS (8)
  - Activated partial thromboplastin time prolonged [None]
  - International normalised ratio increased [None]
  - Toxicity to various agents [None]
  - Mental status changes [None]
  - Hypotension [None]
  - Bradycardia [None]
  - Blood creatinine increased [None]
  - Hypothermia [None]

NARRATIVE: CASE EVENT DATE: 20160122
